FAERS Safety Report 9369795 (Version 2)
Quarter: 2013Q2

REPORT INFORMATION
  Report Type: Report from Study
  Country: US (occurrence: US)
  Receive Date: 20130626
  Receipt Date: 20130626
  Transmission Date: 20140414
  Serious: Yes (Death, Life-Threatening, Hospitalization, Other)
  Sender: FDA-Public Use
  Company Number: US-ASTELLAS-2013EU001055

PATIENT
  Age: 50 Year
  Sex: Male
  Weight: 85.7 kg

DRUGS (93)
  1. FIDAXOMICIN [Suspect]
     Indication: PROPHYLAXIS
     Dosage: 1 DF, UID/QD
     Route: 048
     Dates: start: 20121120, end: 20121224
  2. PROGRAF [Suspect]
     Indication: PROPHYLAXIS AGAINST TRANSPLANT REJECTION
     Dosage: 1.72 MG, QD
     Route: 042
     Dates: start: 20121124, end: 20121128
  3. PROGRAF [Suspect]
     Dosage: 1.2 MG, QD
     Route: 042
     Dates: start: 20121129, end: 20121208
  4. PROGRAF [Suspect]
     Dosage: 1.5 MG, BID
     Route: 048
     Dates: start: 20121209, end: 20121212
  5. PROGRAF [Suspect]
     Dosage: 1 MG, BID
     Route: 048
     Dates: start: 20121213, end: 20130103
  6. PROGRAF [Suspect]
     Dosage: 2 MG, BID
     Route: 048
     Dates: start: 20130104, end: 20130106
  7. PROGRAF [Suspect]
     Dosage: 3 MG, BID
     Route: 048
     Dates: start: 20130107, end: 20130109
  8. PROGRAF [Suspect]
     Dosage: 2 MG, BID
     Route: 048
     Dates: start: 20130110, end: 20130110
  9. PROGRAF [Suspect]
     Dosage: 1 MG, BID
     Route: 048
     Dates: start: 20130111, end: 20130115
  10. NEXIUM [Concomitant]
     Indication: PROPHYLAXIS AGAINST GASTROINTESTINAL ULCER
     Dosage: 40 MG, QD
     Route: 048
     Dates: start: 20121031, end: 20130125
  11. NEXIUM [Concomitant]
     Indication: PROPHYLAXIS AGAINST GASTROINTESTINAL ULCER
  12. ATIVAN [Concomitant]
     Indication: ANXIETY
     Dosage: 0.5 MG, PRN
     Route: 048
     Dates: start: 20121019, end: 20130114
  13. FLAGYL [Concomitant]
     Indication: CHOLECYSTITIS ACUTE
     Dosage: 500 MG, TID
     Route: 042
     Dates: start: 20130103, end: 20130107
  14. FLAGYL [Concomitant]
     Indication: FEBRILE NEUTROPENIA
     Dosage: 500 MG, TID
     Route: 048
     Dates: start: 20130107, end: 20130109
  15. FLAGYL [Concomitant]
     Dosage: 500 MG, TID
     Route: 042
     Dates: start: 20121031, end: 20121105
  16. FLAGYL [Concomitant]
     Dosage: 500 MG, TID
     Route: 042
     Dates: start: 20130111, end: 20130114
  17. VALTREX [Concomitant]
     Indication: ANTIVIRAL PROPHYLAXIS
     Dosage: 2000 MG, QID
     Route: 048
     Dates: start: 20121130, end: 20121212
  18. VALTREX [Concomitant]
     Dosage: 2000 MG, TID
     Route: 048
     Dates: start: 20121213, end: 20130104
  19. VALTREX [Concomitant]
     Dosage: 1000 MG, QID
     Route: 048
     Dates: start: 20130112, end: 20130116
  20. TAMIFLU [Concomitant]
     Indication: INFLUENZA
     Dosage: 75 MG, BID
     Route: 048
     Dates: start: 20130107, end: 20130118
  21. AZTREONAM [Concomitant]
     Indication: SEPSIS
     Dosage: 2 G, QD
     Route: 042
     Dates: start: 20130124, end: 20130127
  22. BUPIVACAINE W/EPINEPHRINE [Concomitant]
     Dosage: 10 ML, SINGLE
     Route: 058
     Dates: start: 20130119, end: 20130119
  23. CEFEPIME [Concomitant]
     Indication: FEBRILE NEUTROPENIA
     Dosage: 2 G, TID
     Route: 042
     Dates: start: 20121030, end: 20121105
  24. CEFEPIME [Concomitant]
     Indication: CHOLECYSTITIS ACUTE
     Dosage: 2 G, TID
     Route: 042
     Dates: start: 20121207, end: 20121212
  25. CEFEPIME [Concomitant]
     Indication: SEPSIS
     Dosage: 2 G, TID
     Route: 042
     Dates: start: 20130103, end: 20130103
  26. CEFEPIME [Concomitant]
     Dosage: 2 G, BID
     Route: 042
     Dates: start: 20130104, end: 20130109
  27. CEFEPIME [Concomitant]
     Dosage: 2 G, QD
     Route: 042
     Dates: start: 20130112, end: 20130114
  28. CEFEPIME [Concomitant]
     Dosage: 2 G, TID
     Route: 042
     Dates: start: 20130111, end: 20130114
  29. CHLOROTHIAZIDE [Concomitant]
     Indication: OEDEMA
     Dosage: 500 MG, QD
     Route: 042
     Dates: start: 20130120, end: 20130121
  30. CIDOFOVIR [Concomitant]
     Indication: SEPSIS
     Dosage: 75 MG, QD
     Route: 042
     Dates: start: 20130124, end: 20130124
  31. CIPROFLOXACIN [Concomitant]
     Indication: SEPSIS
     Dosage: 400 MG, QD
     Route: 042
     Dates: start: 20130124, end: 20130126
  32. DAPTOMYCIN [Concomitant]
     Indication: CHOLECYSTITIS ACUTE
     Dosage: 450 MG, SINGLE
     Route: 042
     Dates: start: 20130104, end: 20130104
  33. DAPTOMYCIN [Concomitant]
     Indication: SEPSIS
     Dosage: 450 MG, QD
     Route: 042
     Dates: start: 20130112, end: 20130113
  34. DAPTOMYCIN [Concomitant]
     Dosage: 600 MG, QOD
     Route: 042
     Dates: start: 20130121, end: 20130127
  35. DAPTOMYCIN [Concomitant]
     Dosage: 600 MG, QD
     Route: 042
     Dates: start: 20130114, end: 20130120
  36. DIPHENHYDRAMINE [Concomitant]
     Indication: PRURITUS
     Dosage: 25-50 MG, PRN
     Route: 042
     Dates: start: 20130112, end: 20130118
  37. DIPHENHYDRAMINE [Concomitant]
     Dosage: 50 MG, SINGLE
     Route: 048
     Dates: start: 20130115, end: 20130115
  38. ESOMEPRAZOLE [Concomitant]
     Indication: PROPHYLAXIS AGAINST GASTROINTESTINAL ULCER
     Dosage: 40 MG, QD
     Route: 048
     Dates: start: 20130112, end: 20130127
  39. FENTANYL [Concomitant]
     Indication: SEDATION
     Dosage: 50 MCG, PRN
     Route: 042
     Dates: start: 20130117, end: 20130118
  40. FENTANYL [Concomitant]
     Dosage: 1000 MCG, PRN
     Route: 042
     Dates: start: 20130126, end: 20130127
  41. NEUPOGEN [Concomitant]
     Indication: NEUTROPENIA
     Dosage: 480 MCG, QD
     Route: 058
     Dates: start: 20121101, end: 20121105
  42. NEUPOGEN [Concomitant]
     Dosage: 480 MCG, QD
     Route: 058
     Dates: start: 20121126, end: 20121211
  43. NEUPOGEN [Concomitant]
     Dosage: 480 MCG, SINGLE
     Route: 058
     Dates: start: 20130104, end: 20130104
  44. NEUPOGEN [Concomitant]
     Dosage: 300 MCG, QD
     Route: 058
     Dates: start: 20130115, end: 20130127
  45. LASIX [Concomitant]
     Indication: OEDEMA
     Dosage: 80-200 MG, PRN
     Route: 042
     Dates: start: 20130120, end: 20130121
  46. GANCICLOVIR [Concomitant]
     Indication: SEPSIS
     Dosage: 420 MG, BID
     Route: 042
     Dates: start: 20121119, end: 20121124
  47. GANCICLOVIR [Concomitant]
     Indication: PROPHYLAXIS
     Dosage: 100 MG, SINGLE
     Route: 042
     Dates: start: 20130123, end: 20130124
  48. GLYCOPYRROLATE [Concomitant]
     Dosage: 0.8 MG, SINGLE
     Route: 042
     Dates: start: 20130117, end: 20130117
  49. HYDROMORPHONE [Concomitant]
     Indication: PAIN
     Dosage: 0.2-1 MG, PRN
     Route: 042
     Dates: start: 20130112, end: 20130125
  50. EUCERIN [Concomitant]
     Indication: ECZEMA
     Dosage: 1 APPLICATION, PRN
     Route: 061
     Dates: start: 20130105, end: 20130109
  51. EUCERIN [Concomitant]
     Dosage: 1 APPLICATION, PRN
     Route: 061
     Dates: start: 20130112, end: 20130127
  52. IMMUNE GLOBULIN [Concomitant]
     Indication: NEUTROPENIA
     Dosage: 25 G, SINGLE
     Route: 042
     Dates: start: 20130115, end: 20130115
  53. TRANDATE [Concomitant]
     Dosage: 10 MG, PRN
     Route: 042
     Dates: start: 20130119, end: 20130119
  54. LIDOCAINE [Concomitant]
     Dosage: 5 ML, SINGLE
     Route: 042
     Dates: start: 20130119, end: 20130119
  55. IMODIUM [Concomitant]
     Indication: DIARRHOEA
     Dosage: 2 MG, QD
     Route: 048
     Dates: start: 20130107, end: 20130108
  56. IMODIUM [Concomitant]
     Dosage: 2 MG, PRN
     Route: 048
     Dates: start: 20130124, end: 20130127
  57. MAG-OX [Concomitant]
     Indication: BLOOD MAGNESIUM DECREASED
     Dosage: 400 MG, SINGLE
     Route: 048
     Dates: start: 20130116, end: 20130116
  58. MAGNESIUM SULFATE [Concomitant]
     Indication: HYPOMAGNESAEMIA
     Dosage: 2 G, PRN
     Route: 042
     Dates: start: 20121017, end: 20121213
  59. MAGNESIUM SULFATE [Concomitant]
     Indication: BLOOD MAGNESIUM DECREASED
     Dosage: 2 G, PRN
     Route: 048
     Dates: start: 20130104, end: 20130109
  60. MAGNESIUM SULFATE [Concomitant]
     Dosage: 2 G, PRN
     Route: 048
     Dates: start: 20130112, end: 20130123
  61. MICAFUNGIN [Concomitant]
     Indication: ANTIFUNGAL PROPHYLAXIS
     Dosage: 50 MG, QD
     Route: 042
     Dates: start: 20130104, end: 20130109
  62. MICAFUNGIN [Concomitant]
     Dosage: 50 MG, QD
     Route: 042
     Dates: start: 20130123, end: 20130127
  63. MIDAZOLAM [Concomitant]
     Dosage: 1 MG, PRN
     Route: 042
     Dates: start: 20130117, end: 20130119
  64. MORPHINE [Concomitant]
     Indication: CHOLECYSTITIS ACUTE
     Dosage: 2-4 MG, PRN
     Route: 042
     Dates: start: 20130103, end: 20130105
  65. MORPHINE [Concomitant]
     Indication: PAIN
     Dosage: 2 MG, PRN
     Route: 042
     Dates: start: 20130117, end: 20130117
  66. NEOSTIGMINE [Concomitant]
     Dosage: 4 MG, PRN
     Route: 042
     Dates: start: 20130119, end: 20130119
  67. NOREPINEPHRINE [Concomitant]
     Indication: SEPSIS
     Dosage: 0.1-0.3 MG, PRN
     Route: 042
     Dates: start: 20130123, end: 20130127
  68. ONDANSETRON [Concomitant]
     Indication: NAUSEA
     Dosage: 4 MG, PRN
     Route: 048
     Dates: start: 20130114, end: 20130127
  69. PHYTONADIONE [Concomitant]
     Indication: SUPPLEMENTATION THERAPY
     Dosage: 10 MG, QD
     Route: 001
     Dates: start: 20130118, end: 20130127
  70. ZOSYN [Concomitant]
     Indication: SEPSIS
     Dosage: 3.375 G, QD
     Route: 042
     Dates: start: 20130114, end: 20130124
  71. K-DUR [Concomitant]
     Indication: HYPOKALAEMIA
     Dosage: 20-60 MEQ, PRN
     Route: 048
     Dates: start: 20121102, end: 20121213
  72. K-DUR [Concomitant]
     Indication: BLOOD POTASSIUM DECREASED
     Dosage: 40 MEQ, SINGLE
     Route: 048
     Dates: start: 20130108, end: 20130108
  73. K-DUR [Concomitant]
     Dosage: 40 MEQ, QD
     Route: 048
     Dates: start: 20130117, end: 20130117
  74. POTASSIUM CHLORIDE [Concomitant]
     Indication: HYPOKALAEMIA
     Dosage: 20 MEQ, PRN
     Route: 042
     Dates: start: 20130104, end: 20130109
  75. POTASSIUM CHLORIDE [Concomitant]
     Indication: BLOOD POTASSIUM DECREASED
     Dosage: 20 MEQ, QD
     Route: 042
     Dates: start: 20130112, end: 20130124
  76. PROBENECID [Concomitant]
     Indication: SEPSIS
     Dosage: 1000 MG, QD
     Route: 058
     Dates: start: 20130124, end: 20130125
  77. PROPOFOL [Concomitant]
     Dosage: 10-50 MCG, PRN
     Route: 042
     Dates: start: 20130119, end: 20130119
  78. ROCURONIUM [Concomitant]
     Indication: SEDATION
     Dosage: 10-50 MCG, PRN
     Route: 042
     Dates: start: 20130119, end: 20130119
  79. ROCURONIUM [Concomitant]
     Dosage: 40 MCG, SINGLE
     Route: 042
     Dates: start: 20130126, end: 20130126
  80. BICITRA [Concomitant]
     Indication: SEPSIS
     Dosage: 15-30 ML, BID
     Route: 048
     Dates: start: 20130120, end: 20130127
  81. TACROLIMUS [Concomitant]
     Indication: STEM CELL TRANSPLANT
     Dosage: 0.5 MG, BID
     Route: 048
     Dates: start: 20130118, end: 20130120
  82. TACROLIMUS [Concomitant]
     Dosage: 0.5 MG, BID
     Route: 042
     Dates: start: 20130123, end: 20130124
  83. TOBRAMYCIN [Concomitant]
     Indication: SEPSIS
     Dosage: 480 MCG, SINGLE
     Route: 042
     Dates: start: 20130117, end: 20130117
  84. TOBRAMYCIN [Concomitant]
     Dosage: 160-280 MG, Q48H
     Route: 042
     Dates: start: 20130123, end: 20130124
  85. TRIAMCINOLONE [Concomitant]
     Indication: ECZEMA
     Dosage: 1 APPLICATION, BID
     Route: 061
     Dates: start: 20130105, end: 20130109
  86. TRIAMCINOLONE [Concomitant]
     Dosage: 1 APPLICATION, TID
     Route: 061
     Dates: start: 20130112, end: 20130127
  87. VORICONAZOLE [Concomitant]
     Indication: ANTIFUNGAL PROPHYLAXIS
     Dosage: 200 MG, BID
     Route: 048
     Dates: start: 20121119, end: 20130103
  88. VORICONAZOLE [Concomitant]
     Dosage: 200 MG, BID
     Route: 048
     Dates: start: 20130112, end: 20130123
  89. ZANAMIVIR [Concomitant]
     Indication: INFLUENZA
     Dosage: 2 PUFFS, BID
     Route: 055
     Dates: start: 20120121, end: 20130127
  90. ZOLPIDEM [Concomitant]
     Indication: INSOMNIA
     Dosage: 5 MG, QHS
     Route: 048
     Dates: start: 20130117, end: 20130117
  91. ACETAMINOPHEN [Concomitant]
     Indication: PYREXIA
     Dosage: 650 MG, PRN
     Route: 048
     Dates: start: 20130112, end: 20130124
  92. ACETAMINOPHEN [Concomitant]
     Dosage: 325-975 MG, PRN
     Route: 048
     Dates: start: 20130119, end: 20130119
  93. ATOVAQUONE [Concomitant]
     Indication: ANTIBIOTIC PROPHYLAXIS
     Dosage: 1500 MG, BID
     Route: 048
     Dates: start: 20130124, end: 20130127

REACTIONS (3)
  - Subarachnoid haemorrhage [Fatal]
  - Sepsis [None]
  - Pulmonary oedema [None]
